FAERS Safety Report 8162314-1 (Version None)
Quarter: 2012Q1

REPORT INFORMATION
  Report Type: 
  Country: None (occurrence: None)
  Receive Date: 20120224
  Receipt Date: 20110610
  Transmission Date: 20120608
  Serious: No
  Sender: FDA-Public Use
  Company Number: US-MYLANLABS-2011S1012242

PATIENT
  Age: 66 Year
  Sex: Male
  Weight: 106.6 kg

DRUGS (1)
  1. HYDROCHLOROTHIAZIDE [Suspect]
     Indication: BLOOD PRESSURE INCREASED
     Dates: start: 20110501, end: 20110501

REACTIONS (2)
  - RASH PRURITIC [None]
  - ERYTHEMA [None]
